FAERS Safety Report 12679831 (Version 1)
Quarter: 2016Q3

REPORT INFORMATION
  Report Type: Spontaneous
  Country: US (occurrence: US)
  Receive Date: 20160824
  Receipt Date: 20160824
  Transmission Date: 20161109
  Serious: No
  Sender: FDA-Public Use
  Company Number: PHHY2016US115942

PATIENT
  Sex: Female

DRUGS (4)
  1. VOLTAREN [Suspect]
     Active Substance: DICLOFENAC SODIUM
     Indication: SKIN DISORDER
     Route: 065
  2. VOLTAREN [Suspect]
     Active Substance: DICLOFENAC SODIUM
     Indication: SKIN IRRITATION
  3. VOLTAREN [Suspect]
     Active Substance: DICLOFENAC SODIUM
     Indication: LACERATION
  4. VOLTAREN [Suspect]
     Active Substance: DICLOFENAC SODIUM
     Indication: RASH

REACTIONS (2)
  - Therapeutic response unexpected [Unknown]
  - Off label use [Unknown]
